FAERS Safety Report 7961762-X (Version None)
Quarter: 2011Q4

REPORT INFORMATION
  Report Type: 
  Country: None (occurrence: None)
  Receive Date: 20111207
  Receipt Date: 20111129
  Transmission Date: 20120403
  Serious: Yes (Other)
  Sender: FDA-Public Use
  Company Number: US-ABBOTT-11P-163-0879485-00

PATIENT
  Sex: Male
  Weight: 81.72 kg

DRUGS (4)
  1. ANDROGEL [Suspect]
     Indication: BLOOD TESTOSTERONE DECREASED
  2. VELCADE [Suspect]
     Indication: MULTIPLE MYELOMA
     Dates: start: 20110301
  3. LASIX [Concomitant]
     Indication: HYPERTENSION
  4. QUINAPRIL [Concomitant]
     Indication: HYPERTENSION

REACTIONS (2)
  - MULTIPLE MYELOMA [None]
  - NEUROPATHY PERIPHERAL [None]
